FAERS Safety Report 10250444 (Version 1)
Quarter: 2014Q2

REPORT INFORMATION
  Report Type: Spontaneous
  Country: US (occurrence: None)
  Receive Date: 20140618
  Receipt Date: 20140618
  Transmission Date: 20141212
  Serious: Yes (Hospitalization)
  Sender: FDA-Public Use
  Company Number: TPU2014-00146

PATIENT
  Age: 90 Year
  Sex: Female

DRUGS (12)
  1. LIDODERM [Suspect]
     Indication: PAIN
     Route: 061
  2. TRAMADOL HYDROCHLORIDE [Suspect]
     Indication: PAIN
     Route: 048
  3. FENTANYL (FENTANYL) (POULTICE OR PATCH) [Suspect]
     Indication: BACK PAIN
     Route: 062
     Dates: start: 2013, end: 2013
  4. SPIRONOLACTONE [Suspect]
     Indication: FLUID RETENTION
     Route: 048
  5. TYLENOL [Concomitant]
  6. ALLOPURINOL [Concomitant]
  7. DILTIAZEM [Concomitant]
  8. CETIRIZINE [Concomitant]
  9. FLUTICASONE (FLUTICASONE) [Concomitant]
  10. FUROSEMIDE [Concomitant]
  11. LORAZEPAM [Concomitant]
  12. MIRALAX [Concomitant]

REACTIONS (2)
  - Local swelling [None]
  - Hyperhidrosis [None]
